FAERS Safety Report 9658065 (Version 1)
Quarter: 2013Q4

REPORT INFORMATION
  Report Type: Spontaneous
  Country: US (occurrence: US)
  Receive Date: 20131030
  Receipt Date: 20131030
  Transmission Date: 20140711
  Serious: Yes (Other)
  Sender: FDA-Public Use
  Company Number: US-BRISTOL-MYERS SQUIBB COMPANY-19620558

PATIENT
  Age: 60 Year
  Sex: Female
  Weight: 73.92 kg

DRUGS (2)
  1. BYETTA PEN DISPOSABLE [Suspect]
     Indication: TYPE 2 DIABETES MELLITUS
     Dosage: DOSE REDUCED TO 5MCG/1/1/DAY?PRESCRIPTION #: 78881762
     Route: 058
     Dates: start: 2013
  2. METFORMIN HCL [Suspect]

REACTIONS (11)
  - Asthenia [Unknown]
  - Fall [Unknown]
  - Head injury [Unknown]
  - Joint injury [Unknown]
  - Lip injury [Unknown]
  - Tooth fracture [Unknown]
  - Blood glucose increased [Unknown]
  - Weight fluctuation [Unknown]
  - Dizziness [Unknown]
  - Diarrhoea [Unknown]
  - Product quality issue [Unknown]
